FAERS Safety Report 8834852 (Version 5)
Quarter: 2013Q2

REPORT INFORMATION
  Report Type: Report from Study
  Country: AU (occurrence: AU)
  Receive Date: 20121010
  Receipt Date: 20130426
  Transmission Date: 20140414
  Serious: Yes (Hospitalization)
  Sender: FDA-Public Use
  Company Number: AU-BRISTOL-MYERS SQUIBB COMPANY-16936858

PATIENT
  Age: 63 Year
  Sex: Male

DRUGS (1)
  1. IPILIMUMAB [Suspect]
     Indication: METASTATIC MALIGNANT MELANOMA
     Dosage: 1DF:260MG/366MG, 255,850MG?NO OF COURSE:03:19JUL,07AUG,28AUG?INTERRRUPTED ON:28AUG12
     Route: 042
     Dates: start: 20120717, end: 20120828

REACTIONS (3)
  - Multi-organ failure [Recovered/Resolved with Sequelae]
  - Nephritis [Recovering/Resolving]
  - Autoimmune hepatitis [Recovered/Resolved]
